FAERS Safety Report 24684915 (Version 1)
Quarter: 2024Q4

REPORT INFORMATION
  Report Type: Other
  Country: CN (occurrence: CN)
  Receive Date: 20241202
  Receipt Date: 20241202
  Transmission Date: 20250115
  Serious: Yes (Hospitalization, Other)
  Sender: QILU PHARMACEUTICAL
  Company Number: CN-QILU PHARMACEUTICAL CO.LTD.-QLU-000365-2024

PATIENT
  Age: 11 Year
  Sex: Female
  Weight: 43 kg

DRUGS (10)
  1. CISPLATIN [Suspect]
     Active Substance: CISPLATIN
     Indication: Neoplasm malignant
     Dosage: 40 MG ONCE A DAY
     Route: 041
     Dates: start: 20240925, end: 20240928
  2. CISPLATIN [Suspect]
     Active Substance: CISPLATIN
     Indication: Bone sarcoma
  3. METHOTREXATE [Suspect]
     Active Substance: METHOTREXATE
     Indication: Neoplasm malignant
     Dosage: 14 G ONCE DAILY
     Route: 041
     Dates: start: 20241005, end: 20241005
  4. METHOTREXATE [Suspect]
     Active Substance: METHOTREXATE
     Indication: Bone sarcoma
  5. DOXORUBICIN HYDROCHLORIDE [Suspect]
     Active Substance: DOXORUBICIN HYDROCHLORIDE
     Indication: Neoplasm malignant
     Dosage: 60 MG ONCE DAILY
     Route: 041
     Dates: start: 20240925, end: 20240925
  6. DOXORUBICIN HYDROCHLORIDE [Suspect]
     Active Substance: DOXORUBICIN HYDROCHLORIDE
     Indication: Bone sarcoma
  7. DEXTROSE [Concomitant]
     Active Substance: DEXTROSE MONOHYDRATE
     Indication: Neoplasm malignant
     Dosage: 250 ML
     Route: 065
     Dates: start: 2024
  8. DEXTROSE [Concomitant]
     Active Substance: DEXTROSE MONOHYDRATE
  9. SODIUM CHLORIDE [Concomitant]
     Active Substance: SODIUM CHLORIDE
     Indication: Neoplasm malignant
     Dosage: 500 ML
     Route: 065
     Dates: start: 2024
  10. SODIUM CHLORIDE [Concomitant]
     Active Substance: SODIUM CHLORIDE
     Dosage: 400 ML
     Route: 065
     Dates: start: 2024

REACTIONS (5)
  - Mouth ulceration [Recovering/Resolving]
  - Granulocytosis [Unknown]
  - Pyrexia [Recovered/Resolved]
  - Myelosuppression [Unknown]
  - Off label use [Recovered/Resolved]

NARRATIVE: CASE EVENT DATE: 20240925
